FAERS Safety Report 7078242-9 (Version None)
Quarter: 2010Q4

REPORT INFORMATION
  Report Type: 
  Country: None (occurrence: None)
  Receive Date: 20101101
  Receipt Date: 20101101
  Transmission Date: 20110411
  Serious: Yes (Other)
  Sender: FDA-Public Use
  Company Number: None

PATIENT
  Age: 72 Year
  Sex: Female
  Weight: 74.8435 kg

DRUGS (2)
  1. DEXILANT [Suspect]
     Indication: GASTROOESOPHAGEAL REFLUX DISEASE
     Dosage: 60 MG 1 @ DAY ORAL
     Route: 048
     Dates: start: 20100920, end: 20101002
  2. DEXILANT [Suspect]
     Indication: OESOPHAGITIS
     Dosage: 60 MG 1 @ DAY ORAL
     Route: 048
     Dates: start: 20100920, end: 20101002

REACTIONS (2)
  - OESOPHAGEAL ULCER [None]
  - RASH [None]
